FAERS Safety Report 13534825 (Version 1)
Quarter: 2017Q2

REPORT INFORMATION
  Report Type: Spontaneous
  Country: US (occurrence: US)
  Receive Date: 20170511
  Receipt Date: 20170511
  Transmission Date: 20170830
  Serious: No
  Sender: FDA-Public Use
  Company Number: US-009507513-1704USA009417

PATIENT
  Age: 56 Year
  Sex: Female

DRUGS (2)
  1. ZEPATIER [Suspect]
     Active Substance: ELBASVIR\GRAZOPREVIR
     Indication: HEPATITIS C
     Dosage: 100/50 MG (1 TABLET) ONCE DAILY
     Route: 048
     Dates: start: 20170331
  2. HYDROCODONE [Concomitant]
     Active Substance: HYDROCODONE
     Indication: HEPATITIS C
     Dosage: UNK

REACTIONS (2)
  - Faeces discoloured [Recovered/Resolved]
  - Fatigue [Recovered/Resolved]

NARRATIVE: CASE EVENT DATE: 20170331
